FAERS Safety Report 15578816 (Version 1)
Quarter: 2018Q4

REPORT INFORMATION
  Report Type: Other
  Country: RU (occurrence: RU)
  Receive Date: 20181102
  Receipt Date: 20181102
  Transmission Date: 20190205
  Serious: Yes (Other)
  Sender: FDA-Public Use
  Company Number: RU-LUPIN PHARMACEUTICALS INC.-2018-03690

PATIENT
  Age: 9 Month
  Sex: Female
  Weight: 8 kg

DRUGS (2)
  1. CEFAXONE [Suspect]
     Active Substance: CEFTRIAXONE
     Indication: UPPER RESPIRATORY TRACT INFECTION
     Dosage: 500 MG, QD
     Route: 030
     Dates: start: 20171012, end: 20171014
  2. VIFERON [Concomitant]
     Active Substance: INTERFERON ALFA-2B
     Indication: ACUTE RESPIRATORY DISTRESS SYNDROME
     Dosage: UNK
     Route: 054
     Dates: start: 20171012, end: 20171014

REACTIONS (1)
  - Urticaria [Recovered/Resolved]

NARRATIVE: CASE EVENT DATE: 20171014
